FAERS Safety Report 7315161-4 (Version None)
Quarter: 2011Q1

REPORT INFORMATION
  Report Type: 
  Country: None (occurrence: None)
  Receive Date: 20110225
  Receipt Date: 20110216
  Transmission Date: 20110831
  Serious: Yes (Other)
  Sender: FDA-Public Use
  Company Number: US-ROCHE-695899

PATIENT
  Sex: Female
  Weight: 54.4 kg

DRUGS (1)
  1. ACCUTANE [Suspect]
     Indication: ACNE
     Route: 065
     Dates: start: 19990716, end: 19991011

REACTIONS (5)
  - INFLAMMATORY BOWEL DISEASE [None]
  - DEPRESSION [None]
  - EMOTIONAL DISTRESS [None]
  - INTESTINAL OBSTRUCTION [None]
  - CROHN'S DISEASE [None]
